FAERS Safety Report 4818564-2 (Version None)
Quarter: 2005Q4

REPORT INFORMATION
  Report Type: 
  Country: None (occurrence: None)
  Receive Date: 20051031
  Receipt Date: 20051024
  Transmission Date: 20060501
  Serious: Yes (Other)
  Sender: FDA-Public Use
  Company Number: 143494USA

PATIENT
  Age: 39 Year
  Sex: Female
  Weight: 53.978 kg

DRUGS (10)
  1. KETOCONAZOLE [Suspect]
     Indication: FUNGAL INFECTION
     Dates: start: 20050901, end: 20051002
  2. LEVAQUIN [Concomitant]
  3. PROVIGIL [Concomitant]
  4. ALTACE [Concomitant]
  5. DARVOCET-N 100 [Concomitant]
  6. PROZAC [Concomitant]
  7. NEURONTIN [Concomitant]
  8. SINGULAIR [Concomitant]
  9. BUSPAR [Concomitant]
  10. TRAZODONE HCL [Concomitant]

REACTIONS (6)
  - ABDOMINAL PAIN [None]
  - EATING DISORDER [None]
  - HEPATITIS [None]
  - NAUSEA [None]
  - PANCREATITIS [None]
  - PYREXIA [None]
